FAERS Safety Report 9045120 (Version 1)
Quarter: 2013Q1

REPORT INFORMATION
  Report Type: Report from Study
  Country: US (occurrence: US)
  Receive Date: 20130130
  Receipt Date: 20130130
  Transmission Date: 20140127
  Serious: No
  Sender: FDA-Public Use
  Company Number: US-ABBOTT-12P-163-0968816-00

PATIENT
  Age: 17 Year
  Sex: Female

DRUGS (13)
  1. HUMIRA 40 MG/0.8 ML PEN [Suspect]
     Indication: ANKYLOSING SPONDYLITIS
     Dates: start: 201201, end: 20120716
  2. HUMIRA 40 MG/0.8 ML PEN [Suspect]
     Dates: start: 20120716
  3. ALBUTEROL [Concomitant]
     Indication: ASTHMA
     Dosage: 3 PUFFS EVERY 4-6 HOURS
  4. CLOBETASOL [Concomitant]
     Indication: PSORIASIS
     Route: 061
  5. VITAMIN D [Concomitant]
     Indication: PRODUCT USED FOR UNKNOWN INDICATION
     Dosage: 50,000 UNITS TWO TIMES WEEKLY
  6. INDOCIN [Concomitant]
     Indication: ANKYLOSING SPONDYLITIS
     Dosage: 75MG DAILY
  7. SYNTHROID [Concomitant]
     Indication: HYPOTHYROIDISM
     Dosage: 175MCG DAILY
  8. CLARITIN-D [Concomitant]
     Indication: SEASONAL ALLERGY
     Dosage: DAILY
  9. SPRINTEC [Concomitant]
     Indication: POLYCYSTIC OVARIES
     Dosage: 0.25MG DAILY
  10. OMEPRAZOLE [Concomitant]
     Indication: GASTROOESOPHAGEAL REFLUX DISEASE
     Dosage: 40MG DAILY
  11. LYRICA [Concomitant]
     Indication: PAIN
     Dosage: 50MG TWO TIMES DAILY
  12. TRAMADOL [Concomitant]
     Indication: PAIN
     Dosage: 50MG EVERY 4 HOURS AS NEEDED
  13. TRIAMCINOLONE [Concomitant]
     Indication: PSORIASIS

REACTIONS (5)
  - Injection site bruising [Not Recovered/Not Resolved]
  - Injection site nodule [Not Recovered/Not Resolved]
  - Ankylosing spondylitis [Not Recovered/Not Resolved]
  - Injection site pain [Not Recovered/Not Resolved]
  - Injection site erythema [Not Recovered/Not Resolved]
